FAERS Safety Report 4805733-0 (Version None)
Quarter: 2005Q4

REPORT INFORMATION
  Report Type: 
  Country: None (occurrence: None)
  Receive Date: 20051021
  Receipt Date: 20050713
  Transmission Date: 20060501
  Serious: Yes (Hospitalization)
  Sender: FDA-Public Use
  Company Number: US-NOVOPROD-245513

PATIENT
  Age: 52 Year
  Sex: Male
  Weight: 104 kg

DRUGS (4)
  1. NOVOLOG [Suspect]
     Indication: INSULIN-REQUIRING TYPE II DIABETES MELLITUS
     Dosage: DOSE UNKNOWN
     Route: 058
     Dates: start: 20030101, end: 20030101
  2. NOVOLOG [Suspect]
     Dosage: 30 IU, BID
     Route: 058
     Dates: start: 20050617
  3. GLUCOPHAGE [Concomitant]
     Indication: INSULIN-REQUIRING TYPE II DIABETES MELLITUS
  4. ALTACE [Concomitant]
     Indication: HYPERTENSION
     Dosage: UNK, UNK

REACTIONS (1)
  - PARAESTHESIA [None]
